FAERS Safety Report 9255210 (Version 1)
Quarter: 2013Q1

REPORT INFORMATION
  Report Type: Spontaneous
  Country: US (occurrence: None)
  Receive Date: 20121212
  Receipt Date: 20121212
  Transmission Date: 20140127
  Serious: No
  Sender: FDA-Public Use
  Company Number: 1208USA010835

PATIENT
  Age: 61 Year
  Sex: Male

DRUGS (3)
  1. VICTRELIS [Suspect]
     Dosage: 200MG, 4 CAPS, ORAL
     Route: 048
  2. CETAPHIL MOISTURIZING CREAM(ALMOND OIL, CETYL ALCOHOL, DIMETHICONE, GLYCERIN, PETROLATUM, PROPYLENE GLYCOL, VITAMIN E) [Concomitant]
  3. ADVIL (IBUPROFEN) [Concomitant]

REACTIONS (1)
  - Dry skin [None]
